FAERS Safety Report 6755008-8 (Version None)
Quarter: 2010Q2

REPORT INFORMATION
  Report Type: 
  Country: None (occurrence: None)
  Receive Date: 20100602
  Receipt Date: 20100521
  Transmission Date: 20101027
  Serious: Yes (Other)
  Sender: FDA-Public Use
  Company Number: 2010PL000044

PATIENT
  Age: 47 Year
  Sex: Female
  Weight: 85.2762 kg

DRUGS (7)
  1. LOTRONEX [Suspect]
     Indication: ABDOMINAL DISTENSION
     Dosage: 0.5 MG; QD;
     Dates: start: 20100101, end: 20100301
  2. LOTRONEX [Suspect]
     Indication: IRRITABLE BOWEL SYNDROME
     Dosage: 0.5 MG; QD;
     Dates: start: 20100101, end: 20100301
  3. DYAZIDE [Concomitant]
  4. VERAPAMIL [Concomitant]
  5. HYDROXYUREA [Concomitant]
  6. LEVOTHYROXINE SODIUM [Concomitant]
  7. VITAMIN D [Concomitant]

REACTIONS (4)
  - CARDIAC DISORDER [None]
  - DEEP VEIN THROMBOSIS [None]
  - PALPITATIONS [None]
  - PLATELET COUNT INCREASED [None]
